FAERS Safety Report 6933917-4 (Version None)
Quarter: 2010Q3

REPORT INFORMATION
  Report Type: 
  Country: None (occurrence: None)
  Receive Date: 20100820
  Receipt Date: 20100811
  Transmission Date: 20110219
  Serious: Yes (Hospitalization)
  Sender: FDA-Public Use
  Company Number: US-ROCHE-720845

PATIENT
  Age: 59 Year
  Sex: Female
  Weight: 60 kg

DRUGS (3)
  1. BEVACIZUMAB [Suspect]
     Indication: BREAST CANCER
     Dosage: FREQUENCY; D1 AND D 15 ON 28 DAY CYCLE
     Route: 042
     Dates: start: 20100513, end: 20100805
  2. DOXIL [Suspect]
     Indication: BREAST CANCER
     Route: 042
     Dates: start: 20100513, end: 20100805
  3. CARBOPLATIN [Suspect]
     Indication: BREAST CANCER
     Dosage: DOSE: 5 AUC
     Route: 042
     Dates: start: 20100513, end: 20100805

REACTIONS (1)
  - PANCREATITIS [None]
